FAERS Safety Report 6292909-1 (Version None)
Quarter: 2009Q3

REPORT INFORMATION
  Report Type: 
  Country: None (occurrence: None)
  Receive Date: 20090729
  Receipt Date: 20080623
  Transmission Date: 20100115
  Serious: No
  Sender: FDA-Public Use
  Company Number: FR-GUERBET-20080074

PATIENT
  Age: 42 Year
  Sex: Female

DRUGS (1)
  1. DOTAREM: / GADOTERIC ACID [Suspect]
     Indication: NUCLEAR MAGNETIC RESONANCE IMAGING
     Dosage: 20 MILLILITRE (S), 1 UNSPECIFIED INTERVAL INTRAVENOUS (NOT OTHERWISE SPECIFIED)
     Route: 042
     Dates: start: 20080605, end: 20080605

REACTIONS (8)
  - ANAPHYLACTOID REACTION [None]
  - ERYTHEMA [None]
  - HYPERHIDROSIS [None]
  - HYPOTENSION [None]
  - MALAISE [None]
  - PALLOR [None]
  - RASH PAPULAR [None]
  - VERTIGO [None]
